FAERS Safety Report 5468899-8 (Version None)
Quarter: 2007Q3

REPORT INFORMATION
  Report Type: 
  Country: None (occurrence: None)
  Receive Date: 20070926
  Receipt Date: 20070921
  Transmission Date: 20080115
  Serious: Yes (Other)
  Sender: FDA-Public Use
  Company Number: GB-SHR-GB-2007-035681

PATIENT
  Age: 42 Year
  Sex: Female
  Weight: 95 kg

DRUGS (5)
  1. BETASERON [Suspect]
     Indication: MULTIPLE SCLEROSIS RELAPSE
     Dosage: 8 MIU, UNK
     Route: 058
     Dates: start: 20070614, end: 20070705
  2. BACLOFEN [Concomitant]
     Dosage: 5 MG, 3X/DAY
     Route: 048
  3. GABAPENTIN [Concomitant]
     Dosage: 300 MG, 3X/DAY
     Route: 048
  4. GLICLAZIDE [Concomitant]
     Route: 048
  5. SIMVASTATIN [Concomitant]
     Route: 048

REACTIONS (1)
  - ALOPECIA [None]
